FAERS Safety Report 18368873 (Version 1)
Quarter: 2020Q4

REPORT INFORMATION
  Report Type: Spontaneous
  Country: GB (occurrence: GB)
  Receive Date: 20201010
  Receipt Date: 20201010
  Transmission Date: 20210114
  Serious: Yes (Other)
  Sender: FDA-Public Use
  Company Number: GB-IPSEN BIOPHARMACEUTICALS, INC.-2020-17686

PATIENT
  Age: 31 Year
  Sex: Female

DRUGS (4)
  1. AZZALURE [Suspect]
     Active Substance: BOTULINUM TOXIN TYPE A
     Indication: SKIN WRINKLING
     Dosage: TOTAL DOSE 175 UNITS: GLABELLA 65 UNITS, FRONTALS/FRONTALIS 30 UNITS, LATERO LINES/LATERAL CANTHAL L
     Route: 030
     Dates: start: 20200905, end: 20200905
  2. AZZALURE [Suspect]
     Active Substance: BOTULINUM TOXIN TYPE A
     Indication: OFF LABEL USE
  3. AZZALURE [Suspect]
     Active Substance: BOTULINUM TOXIN TYPE A
     Indication: SKIN WRINKLING
  4. AZZALURE [Suspect]
     Active Substance: BOTULINUM TOXIN TYPE A
     Indication: SKIN WRINKLING

REACTIONS (5)
  - Product preparation error [Unknown]
  - Eyelid ptosis [Unknown]
  - Prescribed overdose [Unknown]
  - Ocular myasthenia [Recovering/Resolving]
  - Off label use [Unknown]

NARRATIVE: CASE EVENT DATE: 20200905
